FAERS Safety Report 6718028-5 (Version None)
Quarter: 2010Q2

REPORT INFORMATION
  Report Type: 
  Country: None (occurrence: None)
  Receive Date: 20100510
  Receipt Date: 20100428
  Transmission Date: 20101027
  Serious: Yes (Other)
  Sender: FDA-Public Use
  Company Number: PHHY2010SI27589

PATIENT
  Age: 79 Year
  Sex: Female

DRUGS (2)
  1. EXELON [Suspect]
     Indication: DEMENTIA ALZHEIMER'S TYPE
     Dosage: 4,6 MG/24H
     Route: 062
     Dates: start: 20090206
  2. EXELON [Suspect]
     Dosage: 9.5 MG, QD
     Dates: end: 20090506

REACTIONS (7)
  - ASTHENIA [None]
  - DIZZINESS [None]
  - GASTROINTESTINAL DISORDER [None]
  - HEART RATE INCREASED [None]
  - PAIN IN EXTREMITY [None]
  - PRURITUS GENERALISED [None]
  - TREMOR [None]
